FAERS Safety Report 15884694 (Version 2)
Quarter: 2019Q1

REPORT INFORMATION
  Report Type: Spontaneous
  Country: US (occurrence: US)
  Receive Date: 20190129
  Receipt Date: 20190211
  Transmission Date: 20190417
  Serious: Yes (Life-Threatening)
  Sender: FDA-Public Use
  Company Number: US-AMREGENT-20190138

PATIENT
  Age: 31 Year
  Sex: Female
  Weight: 63.5 kg

DRUGS (3)
  1. CALCITRIOL. [Concomitant]
     Active Substance: CALCITRIOL
     Dosage: 0.25 MCG
     Route: 048
  2. MIRCERA [Suspect]
     Active Substance: METHOXY POLYETHYLENE GLYCOL-EPOETIN BETA
     Dosage: 225 MCG (THIRD DOSE)
     Route: 040
     Dates: start: 20190118, end: 20190118
  3. VENOFER [Suspect]
     Active Substance: IRON SUCROSE
     Dosage: 100 MG (14TH DOSE)
     Route: 040
     Dates: start: 20190118, end: 20190118

REACTIONS (4)
  - Heart rate increased [Unknown]
  - Vomiting [Unknown]
  - Seizure [Unknown]
  - Unresponsive to stimuli [Unknown]

NARRATIVE: CASE EVENT DATE: 20190118
